FAERS Safety Report 25155413 (Version 2)
Quarter: 2025Q2

REPORT INFORMATION
  Report Type: Spontaneous
  Country: JP (occurrence: JP)
  Receive Date: 20250403
  Receipt Date: 20250422
  Transmission Date: 20250717
  Serious: Yes (Other)
  Sender: MERCK SHARP & DOHME LLC
  Company Number: JP-009507513-2270533

PATIENT
  Age: 77 Year
  Sex: Male

DRUGS (2)
  1. LAGEVRIO [Suspect]
     Active Substance: MOLNUPIRAVIR
     Indication: COVID-19 treatment
     Route: 048
     Dates: start: 20250319, end: 20250324
  2. AZITHROMYCIN DIHYDRATE [Suspect]
     Active Substance: AZITHROMYCIN DIHYDRATE
     Indication: pH body fluid
     Dates: start: 20250326

REACTIONS (2)
  - Pneumonia [Unknown]
  - Rash macular [Recovered/Resolved]

NARRATIVE: CASE EVENT DATE: 20250301
